FAERS Safety Report 10266434 (Version 2)
Quarter: 2014Q2

REPORT INFORMATION
  Report Type: Other
  Country: US (occurrence: US)
  Receive Date: 20140628
  Receipt Date: 20140628
  Transmission Date: 20141212
  Serious: Yes (Hospitalization, Other)
  Sender: FDA-Public Use
  Company Number: US-GSKPPD-2014GSK000303

PATIENT
  Age: 61 Year
  Sex: Male
  Weight: 116.22 kg

DRUGS (5)
  1. AVANDIA [Suspect]
     Indication: DIABETES MELLITUS
     Route: 048
     Dates: start: 20061206, end: 20080601
  2. COUMADIN [Concomitant]
     Route: 048
  3. AMLODIPINE [Concomitant]
     Route: 048
  4. METOPROLOL TARTRATE [Concomitant]
     Route: 048
  5. TERAZOSIN [Concomitant]
     Route: 048

REACTIONS (2)
  - Cardiac failure congestive [None]
  - Endocarditis [Recovered/Resolved]
